FAERS Safety Report 4742817-X (Version None)
Quarter: 2005Q3

REPORT INFORMATION
  Report Type: 
  Country: None (occurrence: None)
  Receive Date: 20050811
  Receipt Date: 20050808
  Transmission Date: 20060218
  Serious: Yes (Hospitalization)
  Sender: FDA-Public Use
  Company Number: ZA-GLAXOSMITHKLINE-B0369034B

PATIENT
  Age: 67 Year
  Sex: Female

DRUGS (4)
  1. TOPOTECAN [Suspect]
     Indication: OVARIAN CANCER
     Dosage: 1.25MGM2 PER DAY
     Dates: start: 20040209
  2. CIPROFLOXACIN HCL [Concomitant]
  3. IMODIUM [Concomitant]
  4. PROCHLOROPERAZINE [Concomitant]

REACTIONS (5)
  - ANAEMIA [None]
  - DIARRHOEA [None]
  - NAUSEA [None]
  - SYNCOPE [None]
  - URINARY TRACT INFECTION [None]
